FAERS Safety Report 12959521 (Version 1)
Quarter: 2016Q4

REPORT INFORMATION
  Report Type: Spontaneous
  Country: US (occurrence: US)
  Receive Date: 20161118
  Receipt Date: 20161118
  Transmission Date: 20170207
  Serious: Yes (Other)
  Sender: FDA-Public Use
  Company Number: None

PATIENT
  Age: 44 Year
  Sex: Female

DRUGS (22)
  1. CARISOPRODOL. [Concomitant]
     Active Substance: CARISOPRODOL
  2. FLONASE [Concomitant]
     Active Substance: FLUTICASONE PROPIONATE
  3. TOPAMAX [Concomitant]
     Active Substance: TOPIRAMATE
  4. CYANOCOBALAMIN. [Concomitant]
     Active Substance: CYANOCOBALAMIN
  5. POTASSIUM [Concomitant]
     Active Substance: POTASSIUM
  6. PROMETHAZINE [Concomitant]
     Active Substance: PROMETHAZINE\PROMETHAZINE HYDROCHLORIDE
  7. RESTORIL [Concomitant]
     Active Substance: TEMAZEPAM
  8. AMITRIPTYLINE [Concomitant]
     Active Substance: AMITRIPTYLINE
  9. LASIX [Concomitant]
     Active Substance: FUROSEMIDE
  10. BENTYL [Concomitant]
     Active Substance: DICYCLOMINE HYDROCHLORIDE
  11. DIFLUCAN [Concomitant]
     Active Substance: FLUCONAZOLE
  12. CELEXA [Concomitant]
     Active Substance: CITALOPRAM HYDROBROMIDE
  13. GABAPENTIN. [Concomitant]
     Active Substance: GABAPENTIN
  14. LIBRAX [Concomitant]
     Active Substance: CHLORDIAZEPOXIDE HYDROCHLORIDE\CLIDINIUM BROMIDE
  15. LIDOCAINE. [Concomitant]
     Active Substance: LIDOCAINE
  16. HUMIRA [Suspect]
     Active Substance: ADALIMUMAB
     Indication: CROHN^S DISEASE
     Dosage: ?          OTHER FREQUENCY:LOADING DOSE;?
     Route: 058
  17. ALPRAZOLAM. [Concomitant]
     Active Substance: ALPRAZOLAM
  18. SILVER SULFADIAZINE. [Concomitant]
     Active Substance: SILVER SULFADIAZINE
  19. ZANAFLEX [Concomitant]
     Active Substance: TIZANIDINE HYDROCHLORIDE
  20. HUMIRA [Suspect]
     Active Substance: ADALIMUMAB
     Indication: COLITIS ULCERATIVE
     Dosage: ?          OTHER FREQUENCY:LOADING DOSE;?
     Route: 058
  21. OMEPRAZOLE. [Concomitant]
     Active Substance: OMEPRAZOLE
  22. LEVOTHYROXINE. [Concomitant]
     Active Substance: LEVOTHYROXINE

REACTIONS (1)
  - Migraine [None]

NARRATIVE: CASE EVENT DATE: 20161111
